FAERS Safety Report 5092838-5 (Version None)
Quarter: 2006Q3

REPORT INFORMATION
  Report Type: 
  Country: None (occurrence: None)
  Receive Date: 20060828
  Receipt Date: 20060815
  Transmission Date: 20061208
  Serious: Yes (Other)
  Sender: FDA-Public Use
  Company Number: S06-USA-02732-01

PATIENT
  Age: 68 Year
  Sex: Female

DRUGS (9)
  1. NAMENDA [Suspect]
     Indication: PARKINSONISM
     Dosage: 10 MG BID PO
     Route: 048
     Dates: start: 20060101, end: 20060501
  2. NAMENDA [Suspect]
     Indication: PARKINSONISM
     Dosage: 10 MG BID PO
     Route: 048
     Dates: start: 20060616, end: 20060711
  3. NAMENDA [Suspect]
     Indication: PARKINSONISM
     Dosage: 5 MG QD PO
     Route: 048
     Dates: start: 20060401, end: 20060101
  4. NAMENDA [Suspect]
     Indication: PARKINSONISM
     Dosage: 5 MG BID PO
     Route: 048
     Dates: start: 20060101, end: 20060101
  5. NAMENDA [Suspect]
     Indication: PARKINSONISM
     Dosage: 15 MG QD PO
     Route: 048
     Dates: start: 20060101, end: 20060101
  6. NAMENDA [Suspect]
     Indication: PARKINSONISM
     Dosage: 5 MG QD PO
     Route: 048
     Dates: start: 20060526, end: 20060601
  7. NAMENDA [Suspect]
     Indication: PARKINSONISM
     Dosage: 5 MG BID PO
     Route: 048
     Dates: start: 20060602, end: 20060608
  8. NAMENDA [Suspect]
     Indication: PARKINSONISM
     Dosage: 15 MG QD PO
     Route: 048
     Dates: start: 20060609, end: 20060615
  9. MULTIPLE MEDICATIONS (NOS) [Concomitant]

REACTIONS (5)
  - CONDITION AGGRAVATED [None]
  - DEMENTIA [None]
  - FALL [None]
  - FOREARM FRACTURE [None]
  - PARKINSONISM [None]
